FAERS Safety Report 8292266-5 (Version None)
Quarter: 2012Q2

REPORT INFORMATION
  Report Type: 
  Country: None (occurrence: None)
  Receive Date: 20120417
  Receipt Date: 20120416
  Transmission Date: 20120825
  Serious: Yes (Hospitalization)
  Sender: FDA-Public Use
  Company Number: PL-ROCHE-1041227

PATIENT
  Sex: Male
  Weight: 93.5 kg

DRUGS (22)
  1. INSULIN ISOPHANE [Concomitant]
     Dosage: 46J DAILY
     Dates: start: 20051123
  2. ACETYLSALICYLIC ACID SRT [Concomitant]
     Dates: start: 20060522
  3. OMEPRAZOLE [Concomitant]
     Dates: start: 20070917
  4. CALCIUM CARBONATE [Concomitant]
     Dates: start: 20070917
  5. DIOSMINE [Concomitant]
     Dates: start: 20100322
  6. MIRCERA [Suspect]
     Indication: NEPHROGENIC ANAEMIA
     Dosage: LAST DOSE PRIOR TO SAE  04 APR 2012
     Route: 042
     Dates: start: 20111005
  7. FUROSEMIDE [Concomitant]
     Dates: start: 20051123
  8. MAGNESIUM/POTASSIUM [Concomitant]
     Dates: start: 20100712
  9. DIMETICON [Concomitant]
     Dates: start: 20100816
  10. TAMSULOSIN HCL [Concomitant]
     Dates: start: 20100212
  11. CINACALCET HYDROCHLORIDE [Concomitant]
     Dates: start: 20111017
  12. INSULIN HUMAN [Concomitant]
     Dates: start: 20051023
  13. ALUMINUM HYDROXIDE GEL [Concomitant]
     Dates: start: 20100203
  14. FOLIC ACID [Concomitant]
     Dates: start: 20110114
  15. ETAMSYLATE [Concomitant]
     Dates: start: 20080619
  16. ACETYLCYSTEINE [Concomitant]
     Dates: start: 20100521
  17. DROTAVERINE [Concomitant]
     Dates: start: 20100816
  18. METOPROLOL TARTRATE [Concomitant]
     Dates: start: 20100514
  19. ALLOPURINOL [Concomitant]
     Dates: start: 20051123
  20. ALPHACALCIDOL [Concomitant]
     Dates: start: 20060422
  21. CYANOCOBALAMIN [Concomitant]
     Dates: start: 20100203
  22. SIMVASTATIN [Concomitant]
     Dates: start: 20051123

REACTIONS (2)
  - LOWER GASTROINTESTINAL HAEMORRHAGE [None]
  - RECTAL CANCER [None]
